FAERS Safety Report 12600401 (Version 1)
Quarter: 2016Q3

REPORT INFORMATION
  Report Type: Report from Study
  Country: US (occurrence: US)
  Receive Date: 20160727
  Receipt Date: 20160727
  Transmission Date: 20161109
  Serious: Yes (Hospitalization)
  Sender: FDA-Public Use
  Company Number: US-BAYER-2016-137036

PATIENT
  Age: 43 Year
  Sex: Male
  Weight: 145.58 kg

DRUGS (2)
  1. ADEMPAS [Suspect]
     Active Substance: RIOCIGUAT
     Indication: PULMONARY ARTERIAL HYPERTENSION
     Dosage: 0.5 MG, TID  (LAST SHIPPED 30-JUN-2016)
     Route: 048
     Dates: start: 20160630
  2. LETAIRIS [Concomitant]
     Active Substance: AMBRISENTAN
     Dosage: UNK

REACTIONS (7)
  - Unevaluable event [Unknown]
  - Constipation [Unknown]
  - Headache [Unknown]
  - Feeling cold [Unknown]
  - Nausea [Unknown]
  - Vomiting [Unknown]
  - Chills [Unknown]

NARRATIVE: CASE EVENT DATE: 20160713
